FAERS Safety Report 4379355-2 (Version None)
Quarter: 2004Q2

REPORT INFORMATION
  Report Type: 
  Country: None (occurrence: None)
  Receive Date: 20040615
  Receipt Date: 20040610
  Transmission Date: 20050107
  Serious: Yes (Congenital Anomaly)
  Sender: FDA-Public Use
  Company Number: 04-06-0825

PATIENT
  Age: 37 Year
  Sex: Female
  Weight: 110 kg

DRUGS (2)
  1. FLUOXETINE [Suspect]
     Indication: DEPRESSION
     Dosage: 20-40MG ORAL
     Route: 048
     Dates: start: 19990101
  2. PENICILLIN V [Concomitant]

REACTIONS (3)
  - DEAFNESS CONGENITAL [None]
  - DEAFNESS NEUROSENSORY [None]
  - DRUG EXPOSURE DURING PREGNANCY [None]
